FAERS Safety Report 8756903 (Version 1)
Quarter: 2012Q4

REPORT INFORMATION
  Report Type: 
  Country: US (occurrence: US)
  Receive Date: 20120828
  Receipt Date: 20120828
  Transmission Date: 20130627
  Serious: Yes (Hospitalization)
  Sender: FDA-Public Use
  Company Number: US-BAYER-2012-086678

PATIENT
  Age: 36 Year
  Sex: Female

DRUGS (12)
  1. YASMIN [Suspect]
     Indication: MENSTRUAL CYCLE MANAGEMENT
  2. XPECT [Concomitant]
     Dosage: UNK
     Dates: start: 20070820
  3. BIAXIN [Concomitant]
     Dosage: UNK
     Dates: start: 20070823
  4. BIAXIN [Concomitant]
     Dosage: UNK
     Dates: start: 20070828
  5. DEXAMETHASONE [Concomitant]
     Dosage: 0.5 mg, UNK
     Dates: start: 20070823
  6. DEXAMETHASONE [Concomitant]
     Dosage: UNK
     Dates: start: 20070828
  7. CLARITHROMYCIN [Concomitant]
     Dosage: 500 mg, UNK
     Dates: start: 20070828
  8. AUGMENTIN [Concomitant]
     Dosage: UNK
     Dates: start: 20070907
  9. HYDRO-DP [Concomitant]
     Dosage: UNK
     Dates: start: 20070907
  10. VITAMINS [Concomitant]
     Dosage: UNK
     Dates: start: 20070907
  11. CLARITIN [Concomitant]
     Dosage: UNK
     Dates: start: 20070907
  12. Z-PAK [Concomitant]
     Dosage: 250 mg, UNK
     Dates: start: 20070820

REACTIONS (2)
  - Jugular vein thrombosis [None]
  - Transverse sinus thrombosis [None]
